FAERS Safety Report 9405895 (Version 3)
Quarter: 2014Q2

REPORT INFORMATION
  Report Type: Spontaneous
  Country: US (occurrence: US)
  Receive Date: 20130717
  Receipt Date: 20140630
  Transmission Date: 20141212
  Serious: Yes (Hospitalization)
  Sender: FDA-Public Use
  Company Number: US-GLAXOSMITHKLINE-A1033291A

PATIENT
  Sex: Male

DRUGS (1)
  1. AVANDIA [Suspect]
     Indication: TYPE 2 DIABETES MELLITUS
     Dosage: 8MG PER DAY
     Route: 048
     Dates: start: 200010, end: 20070301

REACTIONS (5)
  - Myocardial infarction [Unknown]
  - Angina pectoris [Unknown]
  - Hypertension [Unknown]
  - Coronary artery disease [Unknown]
  - Cardiac disorder [Unknown]
